FAERS Safety Report 10044288 (Version 2)
Quarter: 2014Q1

REPORT INFORMATION
  Report Type: Spontaneous
  Country: CA (occurrence: CA)
  Receive Date: 20140328
  Receipt Date: 20140328
  Transmission Date: 20141002
  Serious: Yes (Other)
  Sender: FDA-Public Use
  Company Number: CA-BEH-2013035977

PATIENT
  Age: 78 Year
  Sex: Male

DRUGS (2)
  1. PRIVIGEN [Suspect]
     Route: 042
     Dates: start: 20130426, end: 20130426
  2. A POSITIVE PLAQ. APH. DEL (PR-1) [Suspect]
     Dates: start: 20130426, end: 20130426

REACTIONS (5)
  - Chills [Recovered/Resolved]
  - Tremor [Recovered/Resolved]
  - Hypertension [Recovered/Resolved]
  - Blood pressure increased [Recovered/Resolved]
  - Headache [Recovered/Resolved]
